FAERS Safety Report 8486019-2 (Version None)
Quarter: 2012Q3

REPORT INFORMATION
  Report Type: 
  Country: None (occurrence: None)
  Receive Date: 20120703
  Receipt Date: 20120627
  Transmission Date: 20120928
  Serious: No
  Sender: FDA-Public Use
  Company Number: 2012SP001839

PATIENT
  Age: 43 Year
  Sex: Female

DRUGS (2)
  1. LATUDA [Suspect]
     Indication: BIPOLAR DISORDER
     Route: 048
     Dates: start: 20120601, end: 20120601
  2. XANAX [Concomitant]
     Indication: PRODUCT USED FOR UNKNOWN INDICATION

REACTIONS (1)
  - HYPERSENSITIVITY [None]
